FAERS Safety Report 19302907 (Version 1)
Quarter: 2021Q2

REPORT INFORMATION
  Report Type: Spontaneous
  Country: US (occurrence: US)
  Receive Date: 20210525
  Receipt Date: 20210525
  Transmission Date: 20210717
  Serious: No
  Sender: FDA-Public Use
  Company Number: US-SA-2021SA169117

PATIENT
  Age: 62 Year
  Sex: Female

DRUGS (1)
  1. DUPIXENT [Suspect]
     Active Substance: DUPILUMAB
     Indication: DERMATITIS ATOPIC
     Route: 058
     Dates: start: 202101

REACTIONS (9)
  - Dry skin [Unknown]
  - Eczema [Unknown]
  - Pruritus [Unknown]
  - Sunburn [Unknown]
  - Rash [Unknown]
  - Limb operation [Unknown]
  - Skin fissures [Unknown]
  - Sleep disorder [Unknown]
  - Skin exfoliation [Unknown]

NARRATIVE: CASE EVENT DATE: 20210323
